FAERS Safety Report 8982608 (Version 1)
Quarter: 2012Q4

REPORT INFORMATION
  Report Type: 
  Country: US (occurrence: US)
  Receive Date: 20121221
  Receipt Date: 20121221
  Transmission Date: 20130627
  Serious: Yes (Hospitalization)
  Sender: FDA-Public Use
  Company Number: US-B.I. PHARMACEUTICALS,INC./RIDGEFIELD-2012-BI-03679BP

PATIENT

DRUGS (2)
  1. PRADAXA [Suspect]
     Dosage: 300 mg
     Route: 048
  2. PRADAXA [Suspect]
     Dosage: 150 mg
     Route: 048

REACTIONS (2)
  - Haematuria [Not Recovered/Not Resolved]
  - Urinary tract infection [Not Recovered/Not Resolved]
